FAERS Safety Report 20049227 (Version 4)
Quarter: 2022Q1

REPORT INFORMATION
  Report Type: Report from Study
  Country: US (occurrence: US)
  Receive Date: 20211109
  Receipt Date: 20220121
  Transmission Date: 20220424
  Serious: Yes (Other)
  Sender: FDA-Public Use
  Company Number: US-PFIZER INC-202101259277

PATIENT
  Age: 70 Year
  Sex: Male

DRUGS (2)
  1. IBRANCE [Suspect]
     Active Substance: PALBOCICLIB
     Indication: Breast cancer
     Dosage: 125 MG, ONCE DAILY, 21 DAYS ON AND 7 DAYS OFF
     Route: 048
     Dates: start: 20210828
  2. FASLODEX [Concomitant]
     Active Substance: FULVESTRANT
     Indication: Bone disorder
     Dosage: UNK

REACTIONS (10)
  - Leukopenia [Unknown]
  - Neuropathy peripheral [Unknown]
  - Decreased immune responsiveness [Unknown]
  - COVID-19 [Unknown]
  - Blood test abnormal [Recovered/Resolved]
  - Fatigue [Unknown]
  - Neoplasm progression [Unknown]
  - Dyspepsia [Unknown]
  - Product dose omission in error [Unknown]
  - Therapeutic response unexpected [Unknown]

NARRATIVE: CASE EVENT DATE: 20210101
